FAERS Safety Report 24090800 (Version 3)
Quarter: 2024Q4

REPORT INFORMATION
  Report Type: Spontaneous
  Country: NL (occurrence: NL)
  Receive Date: 20240715
  Receipt Date: 20241015
  Transmission Date: 20250115
  Serious: Yes (Disabling, Other)
  Sender: ABBVIE
  Company Number: NL-BRISTOL-MYERS SQUIBB COMPANY-2024-106255

PATIENT
  Age: 46 Year
  Sex: Female

DRUGS (6)
  1. DEXAMETHASONE [Suspect]
     Active Substance: DEXAMETHASONE
     Indication: Product used for unknown indication
     Dosage: TIME INTERVAL: AS NECESSARY: DOSE INCREASED
     Route: 050
  2. DEXAMETHASONE [Suspect]
     Active Substance: DEXAMETHASONE
     Dosage: TIME INTERVAL: AS NECESSARY
     Route: 050
  3. IPILIMUMAB [Suspect]
     Active Substance: IPILIMUMAB
     Indication: Non-small cell lung cancer
     Route: 065
     Dates: start: 202304, end: 202405
  4. NIVOLUMAB [Suspect]
     Active Substance: NIVOLUMAB
     Indication: Non-small cell lung cancer
     Route: 065
     Dates: start: 202304, end: 202405
  5. PEMETREXED [Suspect]
     Active Substance: PEMETREXED
     Indication: Non-small cell lung cancer
     Route: 065
     Dates: start: 202304
  6. CISPLATIN [Suspect]
     Active Substance: CISPLATIN
     Indication: Non-small cell lung cancer
     Route: 065
     Dates: start: 202304

REACTIONS (6)
  - Brain radiation necrosis [Recovering/Resolving]
  - Metastases to central nervous system [Unknown]
  - Oedema [Unknown]
  - Secondary adrenocortical insufficiency [Unknown]
  - Hypothyroidism [Unknown]
  - Brain oedema [Unknown]

NARRATIVE: CASE EVENT DATE: 20230101
